FAERS Safety Report 13578624 (Version 2)
Quarter: 2017Q2

REPORT INFORMATION
  Report Type: Spontaneous
  Country: FR (occurrence: FR)
  Receive Date: 20170524
  Receipt Date: 20170607
  Transmission Date: 20170830
  Serious: Yes (Hospitalization, Other)
  Sender: FDA-Public Use
  Company Number: FR-009507513-1705FRA010216

PATIENT
  Age: 30 Year
  Sex: Female

DRUGS (1)
  1. CELESTENE CHRONODOSE [Suspect]
     Active Substance: BETAMETHASONE
     Indication: FOETAL GROWTH RESTRICTION
     Dosage: 5.70 MG, SINGLE INTAKE (STRENGTH: 5.70 MG/ML)
     Route: 042
     Dates: start: 20170201, end: 20170201

REACTIONS (2)
  - Diabetic ketoacidosis [Recovered/Resolved]
  - Headache [Recovered/Resolved]

NARRATIVE: CASE EVENT DATE: 20170201
